FAERS Safety Report 7784960-7 (Version None)
Quarter: 2011Q3

REPORT INFORMATION
  Report Type: 
  Country: None (occurrence: None)
  Receive Date: 20110928
  Receipt Date: 20110921
  Transmission Date: 20111222
  Serious: Yes (Hospitalization)
  Sender: FDA-Public Use
  Company Number: US-RB-029926-11

PATIENT
  Age: 40 Year
  Sex: Female

DRUGS (2)
  1. SUBOXONE [Suspect]
     Indication: PRODUCT USED FOR UNKNOWN INDICATION
     Dosage: DOSING INFORMATION UNKNOWN
     Route: 065
  2. SUBOXONE [Suspect]
     Indication: PRODUCT USED FOR UNKNOWN INDICATION
     Dosage: UNKNOWN DOSING DETAILS
     Route: 065

REACTIONS (10)
  - TREMOR [None]
  - HYPERHIDROSIS [None]
  - RHINORRHOEA [None]
  - AMENORRHOEA [None]
  - DRUG WITHDRAWAL SYNDROME [None]
  - MICTURITION DISORDER [None]
  - BACK PAIN [None]
  - TACHYCARDIA [None]
  - UNEVALUABLE EVENT [None]
  - PSYCHIATRIC SYMPTOM [None]
